FAERS Safety Report 6877746-9 (Version None)
Quarter: 2010Q3

REPORT INFORMATION
  Report Type: 
  Country: None (occurrence: None)
  Receive Date: 20100727
  Receipt Date: 20100707
  Transmission Date: 20110219
  Serious: No
  Sender: FDA-Public Use
  Company Number: US-ABBOTT-10P-163-0655622-00

PATIENT
  Age: 50 Year
  Sex: Female

DRUGS (3)
  1. SYNTHROID [Suspect]
     Indication: HYPOTHYROIDISM
     Route: 048
     Dates: start: 20060101, end: 20100601
  2. SYNTHROID [Suspect]
     Dates: start: 20100601
  3. BYSTOLIC [Suspect]
     Indication: HYPERTENSION
     Route: 048
     Dates: start: 20100601

REACTIONS (7)
  - CHEST DISCOMFORT [None]
  - DIZZINESS [None]
  - DRUG INTERACTION [None]
  - ERYTHEMA [None]
  - MUSCLE SPASMS [None]
  - PARAESTHESIA [None]
  - SENSATION OF FOREIGN BODY [None]
